FAERS Safety Report 15115984 (Version 2)
Quarter: 2018Q3

REPORT INFORMATION
  Report Type: Spontaneous
  Country: BR (occurrence: BR)
  Receive Date: 20180706
  Receipt Date: 20180718
  Transmission Date: 20181010
  Serious: Yes (Hospitalization, Disabling, Other)
  Sender: FDA-Public Use
  Company Number: BR-SAKK-2018SA162606AA

PATIENT
  Age: 20 Year
  Sex: Male
  Weight: 55 kg

DRUGS (6)
  1. HUMALOG [Concomitant]
     Active Substance: INSULIN LISPRO
     Indication: BLOOD INSULIN
     Dosage: USING INFUSION PUMP 30 IU, QD
     Route: 058
     Dates: start: 1999
  2. TENOFOVIR DISOPROXIL [Concomitant]
     Active Substance: TENOFOVIR DISOPROXIL
     Indication: ANTIRETROVIRAL THERAPY
     Dosage: 1 DF, QD
     Route: 048
     Dates: start: 2017
  3. APIDRA [Suspect]
     Active Substance: INSULIN GLULISINE
     Dosage: 30 IU, QD USING THE INFUSION PUMP
     Route: 058
  4. LAMIVUDINE. [Concomitant]
     Active Substance: LAMIVUDINE
     Indication: ANTIRETROVIRAL THERAPY
     Dosage: 1 DF, QD
     Route: 048
     Dates: start: 2017
  5. NOVORAPID [Concomitant]
     Active Substance: INSULIN ASPART
     Indication: BLOOD INSULIN
     Dosage: 30 IU, QD
     Route: 058
     Dates: start: 1999
  6. APIDRA [Suspect]
     Active Substance: INSULIN GLULISINE
     Indication: DIABETES MELLITUS MANAGEMENT
     Dosage: 30 IU, QD USING THE INFUSION PUMP
     Dates: start: 2008

REACTIONS (14)
  - Dermal cyst [Not Recovered/Not Resolved]
  - Administration site pain [Not Recovered/Not Resolved]
  - Product use complaint [Unknown]
  - Administration site necrosis [Recovered/Resolved]
  - Abscess drainage [Unknown]
  - Impaired work ability [Unknown]
  - Administration site pustule [Recovered/Resolved]
  - Administration site abscess [Recovered/Resolved]
  - Administration site swelling [Not Recovered/Not Resolved]
  - Administration site discharge [Not Recovered/Not Resolved]
  - Administration site erythema [Not Recovered/Not Resolved]
  - Discomfort [Unknown]
  - Administration site anaesthesia [Not Recovered/Not Resolved]
  - Administration site discomfort [Not Recovered/Not Resolved]

NARRATIVE: CASE EVENT DATE: 2017
